FAERS Safety Report 20657012 (Version 1)
Quarter: 2022Q1

REPORT INFORMATION
  Report Type: Spontaneous
  Country: None (occurrence: IN)
  Receive Date: 20220331
  Receipt Date: 20220331
  Transmission Date: 20220423
  Serious: Yes (Hospitalization, Other)
  Sender: FDA-Public Use
  Company Number: IN-Oxford Pharmaceuticals, LLC-2127268

PATIENT
  Age: 84 Year
  Sex: Male

DRUGS (1)
  1. BACLOFEN [Suspect]
     Active Substance: BACLOFEN
     Indication: Hiccups

REACTIONS (2)
  - Neurotoxicity [Recovered/Resolved]
  - Accidental overdose [Recovered/Resolved]
